FAERS Safety Report 5718281-0 (Version None)
Quarter: 2008Q2

REPORT INFORMATION
  Report Type: 
  Country: None (occurrence: None)
  Receive Date: 20080425
  Receipt Date: 20080201
  Transmission Date: 20081010
  Serious: No
  Sender: FDA-Public Use
  Company Number: US-ASTRAZENECA-2008UW02313

PATIENT
  Age: 53 Year
  Sex: Female

DRUGS (1)
  1. ZOMIG [Suspect]
     Indication: MIGRAINE
     Dates: start: 20050101

REACTIONS (2)
  - MYALGIA [None]
  - THERAPEUTIC RESPONSE UNEXPECTED [None]
